FAERS Safety Report 8532010-7 (Version None)
Quarter: 2012Q3

REPORT INFORMATION
  Report Type: 
  Country: None (occurrence: None)
  Receive Date: 20120723
  Receipt Date: 20120716
  Transmission Date: 20120928
  Serious: Yes (Life-Threatening, Hospitalization, Congenital Anomaly, Other)
  Sender: FDA-Public Use
  Company Number: GXKR2012DE002326

PATIENT
  Sex: Male
  Weight: 2 kg

DRUGS (3)
  1. VENLAFAXINE [Suspect]
     Dosage: MATERNAL DOSE: 150 MG/DAY; REDUCED UNTIL GW 26, THEN STOPPED
     Route: 064
  2. FOLIC ACID [Concomitant]
     Dosage: MATERNAL DOSE: 0.8 MG, QD
     Route: 064
  3. CITALOPRAM [Suspect]
     Dosage: MATERNAL DOSE: 40 MG/DAY
     Route: 064

REACTIONS (10)
  - CEREBRAL HAEMORRHAGE [None]
  - BRADYCARDIA NEONATAL [None]
  - NEONATAL RESPIRATORY DISTRESS SYNDROME [None]
  - ATRIAL SEPTAL DEFECT [None]
  - FOETAL EXPOSURE DURING PREGNANCY [None]
  - HAEMANGIOMA CONGENITAL [None]
  - PATENT DUCTUS ARTERIOSUS [None]
  - LONG QT SYNDROME [None]
  - TEMPERATURE REGULATION DISORDER [None]
  - FEEDING DISORDER [None]
